FAERS Safety Report 24997941 (Version 1)
Quarter: 2025Q1

REPORT INFORMATION
  Report Type: Spontaneous
  Country: FR (occurrence: FR)
  Receive Date: 20250222
  Receipt Date: 20250222
  Transmission Date: 20250409
  Serious: Yes (Other)
  Sender: AUROBINDO
  Company Number: FR-AFSSAPS-TO2025000205

PATIENT
  Age: 75 Year
  Sex: Female

DRUGS (2)
  1. CLOZAPINE [Suspect]
     Active Substance: CLOZAPINE
     Indication: Mixed anxiety and depressive disorder
     Dosage: 150 MILLIGRAM, ONCE A DAY
     Route: 048
     Dates: start: 20240806, end: 20240917
  2. MIRTAZAPINE [Suspect]
     Active Substance: MIRTAZAPINE
     Indication: Mixed anxiety and depressive disorder
     Dosage: 30 MILLIGRAM, ONCE A DAY
     Route: 048
     Dates: start: 20240806

REACTIONS (2)
  - Blood creatine phosphokinase increased [Recovered/Resolved]
  - Hyperthermia [Recovered/Resolved]

NARRATIVE: CASE EVENT DATE: 20240917
